FAERS Safety Report 7284434-6 (Version None)
Quarter: 2011Q1

REPORT INFORMATION
  Report Type: 
  Country: None (occurrence: None)
  Receive Date: 20110209
  Receipt Date: 20110121
  Transmission Date: 20110831
  Serious: Yes (Hospitalization)
  Sender: FDA-Public Use
  Company Number: PHFR2010GB06043

PATIENT
  Sex: Male

DRUGS (4)
  1. CLOZARIL [Suspect]
     Dosage: 550 MG NOCTE
     Route: 048
     Dates: start: 19940524
  2. VENLAFAXINE [Concomitant]
     Dosage: 225MG DAILY
     Route: 048
  3. HYOSCINE HBR HYT [Concomitant]
     Dosage: 300MCG DAILY
     Route: 048
  4. VALPROATE SODIUM [Concomitant]
     Dosage: 2G NOCTE
     Route: 048

REACTIONS (6)
  - MALAISE [None]
  - DYSPEPSIA [None]
  - VOMITING [None]
  - PEPTIC ULCER [None]
  - GASTRITIS [None]
  - HAEMATEMESIS [None]
